FAERS Safety Report 13175683 (Version 1)
Quarter: 2017Q1

REPORT INFORMATION
  Report Type: Spontaneous
  Country: US (occurrence: US)
  Receive Date: 20170131
  Receipt Date: 20170131
  Transmission Date: 20170428
  Serious: Yes (Disabling)
  Sender: FDA-Public Use
  Company Number: None

PATIENT
  Age: 72 Year
  Sex: Female
  Weight: 69.3 kg

DRUGS (23)
  1. PREMARIN CREAM [Concomitant]
  2. FLAXSEED [Concomitant]
     Active Substance: FLAX SEED
  3. KIRKLAND SIGNATURE ALLER TEC ALLERGY [Suspect]
     Active Substance: CETIRIZINE HYDROCHLORIDE
     Indication: PRURITUS
     Route: 048
     Dates: start: 20110101, end: 20160101
  4. ZEAXANTHIN [Concomitant]
     Active Substance: ZEAXANTHIN
  5. ASPIRIN. [Concomitant]
     Active Substance: ASPIRIN
  6. DIGESTIVE PROBIOTICS [Concomitant]
  7. MAGNESIUM [Concomitant]
     Active Substance: MAGNESIUM
  8. ZINC. [Concomitant]
     Active Substance: ZINC
  9. LUT 5 MG [Concomitant]
  10. KIRKLAND SIGNATURE ALLER TEC ALLERGY [Suspect]
     Active Substance: CETIRIZINE HYDROCHLORIDE
     Indication: SEASONAL ALLERGY
     Route: 048
     Dates: start: 20110101, end: 20160101
  11. ZYRTEC [Suspect]
     Active Substance: CETIRIZINE HYDROCHLORIDE
     Indication: SEASONAL ALLERGY
     Dosage: ?          QUANTITY:1 TABLET(S);?
     Route: 048
     Dates: start: 20110101, end: 20160101
  12. ZYRTEC [Suspect]
     Active Substance: CETIRIZINE HYDROCHLORIDE
     Indication: PRURITUS
     Dosage: ?          QUANTITY:1 TABLET(S);?
     Route: 048
     Dates: start: 20110101, end: 20160101
  13. MULTI VITAMIN FOR SENIORS [Concomitant]
  14. GLUCOSAMINE/CHONDROITIN /08437701/ [Concomitant]
     Active Substance: CHONDROITIN SULFATE (BOVINE)\GLUCOSAMINE SULFATE
  15. PRESERVISION [Concomitant]
     Active Substance: MINERALS\VITAMINS
  16. FLONASE [Concomitant]
     Active Substance: FLUTICASONE PROPIONATE
  17. LATANOPROST OPTHALMIC [Concomitant]
     Active Substance: LATANOPROST
  18. VITAMIN C [Concomitant]
     Active Substance: ASCORBIC ACID
  19. VITAMIN D [Concomitant]
     Active Substance: CHOLECALCIFEROL
  20. VITAMIN E [Concomitant]
     Active Substance: .ALPHA.-TOCOPHEROL
  21. CU .8 MG [Concomitant]
  22. LUTEIN [Concomitant]
     Active Substance: LUTEIN
  23. TURMERIC [Concomitant]
     Active Substance: TURMERIC

REACTIONS (3)
  - Pruritus [None]
  - Discomfort [None]
  - Drug withdrawal syndrome [None]

NARRATIVE: CASE EVENT DATE: 20160403
